FAERS Safety Report 23508286 (Version 3)
Quarter: 2024Q4

REPORT INFORMATION
  Report Type: Spontaneous
  Country: FR (occurrence: FR)
  Receive Date: 20240209
  Receipt Date: 20241119
  Transmission Date: 20250114
  Serious: Yes (Life-Threatening, Hospitalization, Other)
  Sender: ALEXION PHARMACEUTICALS
  Company Number: None

PATIENT
  Age: 74 Year
  Weight: 80 kg

DRUGS (8)
  1. IMJUDO [Suspect]
     Active Substance: TREMELIMUMAB\TREMELIMUMAB-ACTL
     Indication: Hepatocellular carcinoma
     Dosage: UNK MICROGRAM PER MILLIGRAM
  2. IMJUDO [Suspect]
     Active Substance: TREMELIMUMAB\TREMELIMUMAB-ACTL
     Dosage: UNK MICROGRAM PER MILLIGRAM
  3. IMJUDO [Suspect]
     Active Substance: TREMELIMUMAB\TREMELIMUMAB-ACTL
     Dosage: UNK MICROGRAM PER MILLIGRAM
  4. IMJUDO [Suspect]
     Active Substance: TREMELIMUMAB\TREMELIMUMAB-ACTL
     Dosage: UNK MICROGRAM PER MILLIGRAM
  5. IMFINZI [Suspect]
     Active Substance: DURVALUMAB
     Indication: Hepatocellular carcinoma
     Dosage: 50 UNK
  6. IMFINZI [Suspect]
     Active Substance: DURVALUMAB
     Dosage: 50 UNK
  7. IMFINZI [Suspect]
     Active Substance: DURVALUMAB
     Dosage: 50 UNK
  8. IMFINZI [Suspect]
     Active Substance: DURVALUMAB
     Dosage: 50 UNK

REACTIONS (17)
  - Diabetic ketoacidosis [Recovered/Resolved]
  - Type 1 diabetes mellitus [Recovered/Resolved with Sequelae]
  - Immune-mediated encephalitis [Not Recovered/Not Resolved]
  - Partial seizures [Not Recovered/Not Resolved]
  - Status epilepticus [Not Recovered/Not Resolved]
  - Asthenia [Unknown]
  - Abdominal pain [Unknown]
  - Vomiting [Unknown]
  - Diarrhoea [Unknown]
  - Hypotension [Unknown]
  - Hyperkalaemia [Unknown]
  - Hyperglycaemia [Unknown]
  - Hemiplegia [Unknown]
  - Aphasia [Unknown]
  - Ischaemic stroke [Unknown]
  - Altered state of consciousness [Unknown]
  - Dyskinesia [Unknown]
